FAERS Safety Report 25469184 (Version 1)
Quarter: 2025Q2

REPORT INFORMATION
  Report Type: Spontaneous
  Country: BR (occurrence: BR)
  Receive Date: 20250623
  Receipt Date: 20250623
  Transmission Date: 20250716
  Serious: Yes (Other)
  Sender: ABBVIE
  Company Number: BR-JNJFOC-20250626135

PATIENT
  Age: 30 Year
  Sex: Male
  Weight: 82 kg

DRUGS (2)
  1. VENETOCLAX [Suspect]
     Active Substance: VENETOCLAX
     Indication: B-cell type acute leukaemia
     Route: 048
  2. IMBRUVICA [Suspect]
     Active Substance: IBRUTINIB
     Indication: B-cell type acute leukaemia
     Route: 048

REACTIONS (1)
  - Leukopenia [Unknown]
